FAERS Safety Report 8069642 (Version 3)
Quarter: 2013Q3

REPORT INFORMATION
  Report Type: Spontaneous
  Country: FR (occurrence: FR)
  Receive Date: 20110804
  Receipt Date: 20130708
  Transmission Date: 20140515
  Serious: Yes (Hospitalization, Other)
  Sender: FDA-Public Use
  Company Number: FR-JNJFOC-20110800466

PATIENT
  Age: 18 Day
  Sex: Female
  Weight: 1.98 kg

DRUGS (8)
  1. REMICADE [Suspect]
     Indication: FOETAL EXPOSURE DURING PREGNANCY
     Dosage: MOTHER RECEIVED 5.3571 MG UNTIL 26 WEEKS OF AMENORRHEA
     Route: 064
     Dates: end: 20110404
  2. ATARAX [Suspect]
     Indication: PRURITUS
     Route: 064
  3. OROKEN [Suspect]
     Indication: PRODUCT USED FOR UNKNOWN INDICATION
     Route: 064
  4. POLARAMIN [Suspect]
     Indication: PRURITUS
     Route: 064
  5. POLARAMIN [Suspect]
     Indication: URTICARIA
     Route: 064
  6. FLAGYL [Suspect]
     Indication: PRODUCT USED FOR UNKNOWN INDICATION
     Route: 064
  7. CELESTENE [Suspect]
     Indication: MATERNAL THERAPY TO ENHANCE FOETAL LUNG MATURITY
     Route: 064
  8. TRACTOCILE (ATOSIBAN) [Suspect]
     Indication: THREATENED LABOUR
     Route: 064

REACTIONS (4)
  - Neutropenia [Recovered/Resolved]
  - Omphalitis [Recovered/Resolved]
  - Premature baby [Recovered/Resolved]
  - Enterobacter infection [Not Recovered/Not Resolved]
